FAERS Safety Report 10421068 (Version 1)
Quarter: 2014Q3

REPORT INFORMATION
  Report Type: Spontaneous
  Country: US (occurrence: None)
  Receive Date: 20140722
  Receipt Date: 20140722
  Transmission Date: 20150326
  Serious: No
  Sender: FDA-Public Use
  Company Number: 163-10004-14051718

PATIENT
  Age: 47 Year
  Sex: Male
  Weight: 107.7 kg

DRUGS (13)
  1. FOLIC ACID. [Concomitant]
     Active Substance: FOLIC ACID
  2. ALLEGRA (FEXOFENADINE HYDROCHLORIDE) [Concomitant]
  3. CALCIUM CITRATE [Concomitant]
     Active Substance: CALCIUM CITRATE
  4. FISH OIL (FISH OIL) [Concomitant]
     Active Substance: FISH OIL
  5. LIDEX (FLUOCINONIDE) [Concomitant]
  6. VOLTAREN (DICLOFENAC) [Concomitant]
  7. VITAMIN B COMPLEX (B-KOMPLEX ^LECIVA^) [Concomitant]
  8. VITAMIN E [Concomitant]
     Active Substance: .ALPHA.-TOCOPHEROL
  9. PREDNISONE (PREDNISONE) [Concomitant]
     Active Substance: PREDNISONE
  10. VALSARTAN. [Concomitant]
     Active Substance: VALSARTAN
  11. OTEZLA [Suspect]
     Active Substance: APREMILAST
     Indication: PSORIATIC ARTHROPATHY
     Route: 048
     Dates: start: 20140429
  12. MTX (METHOTREXATE SODIUM) [Concomitant]
  13. CHONDROITIN 6-SULFATE\GLUCOSAMINE HYDROCHLORIDE [Concomitant]
     Active Substance: GLUCOSAMINE HYDROCHLORIDE

REACTIONS (4)
  - Sinus congestion [None]
  - Nasal congestion [None]
  - Oropharyngeal pain [None]
  - Decreased appetite [None]

NARRATIVE: CASE EVENT DATE: 20140429
